FAERS Safety Report 16977988 (Version 3)
Quarter: 2019Q4

REPORT INFORMATION
  Report Type: Spontaneous
  Country: CZ (occurrence: CZ)
  Receive Date: 20191031
  Receipt Date: 20191218
  Transmission Date: 20200122
  Serious: Yes (Hospitalization)
  Sender: FDA-Public Use
  Company Number: CZ-ROCHE-2451214

PATIENT
  Age: 41 Year
  Sex: Female

DRUGS (5)
  1. CALTRATE [CALCIUM CARBONATE;COLECALCIFEROL] [Concomitant]
  2. AMANTADINE HYDROCHLORIDE. [Concomitant]
     Active Substance: AMANTADINE HYDROCHLORIDE
  3. OCREVUS [Suspect]
     Active Substance: OCRELIZUMAB
     Indication: RELAPSING-REMITTING MULTIPLE SCLEROSIS
     Dosage: ON 18/JUL/2019, SHE RECEIVED HER SECOND DOSE OF OCRELIZUMAB INFUSION
     Route: 041
     Dates: start: 20190702
  4. VIGANTOL [COLECALCIFEROL] [Concomitant]
     Active Substance: CHOLECALCIFEROL
  5. BACLOFEN. [Concomitant]
     Active Substance: BACLOFEN

REACTIONS (3)
  - Alopecia [Not Recovered/Not Resolved]
  - Headache [Unknown]
  - Ophthalmic herpes zoster [Recovered/Resolved]

NARRATIVE: CASE EVENT DATE: 20190801
